FAERS Safety Report 5097056-2 (Version None)
Quarter: 2006Q3

REPORT INFORMATION
  Report Type: 
  Country: None (occurrence: None)
  Receive Date: 20060901
  Receipt Date: 20060815
  Transmission Date: 20061208
  Serious: Yes (Hospitalization)
  Sender: FDA-Public Use
  Company Number: US200608003873

PATIENT
  Age: 52 Year
  Sex: Female
  Weight: 94.3 kg

DRUGS (1)
  1. ZYPREXA [Suspect]
     Indication: BIPOLAR DISORDER
     Dosage: 2.5 MG DAILY (1/D) ; 7.5 MG DAILY (1/D)
     Dates: start: 20010201

REACTIONS (3)
  - DIABETES MELLITUS [None]
  - INSULIN RESISTANCE [None]
  - MYOCARDIAL INFARCTION [None]
